FAERS Safety Report 5554521-9 (Version None)
Quarter: 2007Q4

REPORT INFORMATION
  Report Type: 
  Country: None (occurrence: None)
  Receive Date: 20071210
  Receipt Date: 20071210
  Transmission Date: 20080405
  Serious: Yes (Other)
  Sender: FDA-Public Use
  Company Number: None

PATIENT
  Sex: Female

DRUGS (3)
  1. FENTANYL TRANSDERMAL SYSTEM [Suspect]
     Indication: ARTHRITIS
     Dosage: 100 MCG/HR APPLY EVERY 72 HOURS TRANSDERMAL
     Route: 062
     Dates: end: 20071202
  2. FENTANYL TRANSDERMAL SYSTEM [Suspect]
     Indication: FEMUR FRACTURE
     Dosage: 100 MCG/HR APPLY EVERY 72 HOURS TRANSDERMAL
     Route: 062
     Dates: end: 20071202
  3. FENTANYL TRANSDERMAL SYSTEM [Suspect]
     Indication: PAIN MANAGEMENT
     Dosage: 100 MCG/HR APPLY EVERY 72 HOURS TRANSDERMAL
     Route: 062
     Dates: end: 20071202

REACTIONS (3)
  - OPEN WOUND [None]
  - PAIN [None]
  - RASH [None]
